FAERS Safety Report 13129416 (Version 2)
Quarter: 2017Q1

REPORT INFORMATION
  Report Type: Report from Study
  Country: US (occurrence: US)
  Receive Date: 20170119
  Receipt Date: 20170119
  Transmission Date: 20170428
  Serious: Yes (Hospitalization)
  Sender: FDA-Public Use
  Company Number: US-CIPLA LTD.-2017US00905

PATIENT

DRUGS (3)
  1. TOPIRAMATE. [Suspect]
     Active Substance: TOPIRAMATE
     Indication: ALCOHOLISM
  2. TOPIRAMATE. [Suspect]
     Active Substance: TOPIRAMATE
     Indication: SMOKING CESSATION THERAPY
     Dosage: 100 MG, BID
     Route: 065
  3. TOPIRAMATE. [Suspect]
     Active Substance: TOPIRAMATE
     Indication: ALCOHOLISM

REACTIONS (3)
  - Suicidal ideation [Unknown]
  - Dependence [Unknown]
  - Alcoholism [Unknown]
